FAERS Safety Report 8227869-7 (Version None)
Quarter: 2012Q1

REPORT INFORMATION
  Report Type: 
  Country: None (occurrence: None)
  Receive Date: 20120322
  Receipt Date: 20120319
  Transmission Date: 20120608
  Serious: Yes (Hospitalization, Other)
  Sender: FDA-Public Use
  Company Number: US-BAYER-2011-107043

PATIENT
  Age: 30 Year
  Sex: Female
  Weight: 83.9 kg

DRUGS (12)
  1. PHENERGAN [Concomitant]
     Dosage: 25 MG, UNK
     Route: 048
     Dates: start: 20091006
  2. CEFDINIR [Concomitant]
     Dosage: 300 MG, BID
     Route: 048
     Dates: start: 20091014
  3. LORTAB [Concomitant]
     Dosage: UNK MG, UNK
     Route: 048
     Dates: start: 20091211
  4. TRIAMTERENE AND HYDROCHLOROTHIAZIDE [Concomitant]
     Dosage: UNK UNK, QD
     Route: 048
  5. COMBIVENT [Concomitant]
     Dosage: 2 PUFF(S), TID
     Route: 048
     Dates: start: 20091014
  6. YAZ [Suspect]
     Dosage: UNK
     Dates: start: 20080601, end: 20090701
  7. TORADOL [Concomitant]
     Dosage: 30 MG, UNK
     Route: 042
     Dates: start: 20091006
  8. PROMETHAZINE W/ CODEINE [Concomitant]
     Dosage: UNK
     Route: 048
     Dates: start: 20091022
  9. DEMEROL [Concomitant]
     Dosage: 50 MG, UNK
     Route: 042
     Dates: start: 20091006
  10. PROZAC [Concomitant]
     Dosage: 40 MG, QD
     Route: 048
  11. ZOFRAN [Concomitant]
     Dosage: 4 MG, UNK
     Dates: start: 20091006
  12. POTASSIUM CHLORIDE [Concomitant]
     Dosage: 20 MEQ, BID
     Route: 048
     Dates: start: 20091022

REACTIONS (14)
  - DIARRHOEA [None]
  - CHOLELITHIASIS [None]
  - CEREBROVASCULAR ACCIDENT [None]
  - DYSPEPSIA [None]
  - INJURY [None]
  - EMOTIONAL DISTRESS [None]
  - DEPRESSION [None]
  - CONSTIPATION [None]
  - ANXIETY [None]
  - CHOLECYSTECTOMY [None]
  - SCAR [None]
  - BILE DUCT STONE [None]
  - ABDOMINAL DISTENSION [None]
  - FLATULENCE [None]
